FAERS Safety Report 11135681 (Version 1)
Quarter: 2015Q2

REPORT INFORMATION
  Report Type: Spontaneous
  Country: US (occurrence: None)
  Receive Date: 20150522
  Receipt Date: 20150522
  Transmission Date: 20150821
  Serious: Yes (Hospitalization)
  Sender: FDA-Public Use
  Company Number: None

PATIENT
  Age: 60 Year
  Sex: Male
  Weight: 80 kg

DRUGS (15)
  1. LANTUS [Concomitant]
     Active Substance: INSULIN GLARGINE
  2. VANCOMYCIN [Concomitant]
     Active Substance: VANCOMYCIN
  3. LIDOCAINE. [Concomitant]
     Active Substance: LIDOCAINE
  4. PROGRAF [Concomitant]
     Active Substance: TACROLIMUS\TACROLIMUS ANHYDROUS
  5. PROTONIX [Concomitant]
     Active Substance: PANTOPRAZOLE SODIUM
  6. FLAGYL [Concomitant]
     Active Substance: METRONIDAZOLE\METRONIDAZOLE HYDROCHLORIDE
  7. IRON [Concomitant]
     Active Substance: IRON
  8. ACTIGALL [Concomitant]
     Active Substance: URSODIOL
  9. LEVAQUIN [Concomitant]
     Active Substance: LEVOFLOXACIN
  10. FORTAZ [Concomitant]
     Active Substance: CEFTAZIDIME SODIUM
  11. ANCEF [Concomitant]
     Active Substance: CEFAZOLIN SODIUM
  12. HARVONI [Suspect]
     Active Substance: LEDIPASVIR\SOFOSBUVIR
     Indication: HEPATITIS C
     Dosage: 90MG-400MG DAILY ORAL
     Route: 048
     Dates: start: 20141115, end: 20150501
  13. CEFAZOLIN [Concomitant]
     Active Substance: CEFAZOLIN
  14. INSULIN ASPART [Concomitant]
     Active Substance: INSULIN ASPART
  15. PREDNISONE. [Concomitant]
     Active Substance: PREDNISONE

REACTIONS (6)
  - Back pain [None]
  - Staphylococcal sepsis [None]
  - Vomiting [None]
  - Abdominal pain [None]
  - Nausea [None]
  - Flank pain [None]

NARRATIVE: CASE EVENT DATE: 20150226
